FAERS Safety Report 10368249 (Version 5)
Quarter: 2015Q1

REPORT INFORMATION
  Report Type: Spontaneous
  Country: US (occurrence: US)
  Receive Date: 20140807
  Receipt Date: 20150109
  Transmission Date: 20150720
  Serious: Yes (Death, Life-Threatening, Hospitalization, Other)
  Sender: FDA-Public Use
  Company Number: US-009507513-1408USA003011

PATIENT
  Sex: Male
  Weight: 125.62 kg

DRUGS (1)
  1. JANUMET [Suspect]
     Active Substance: METFORMIN HYDROCHLORIDE\SITAGLIPTIN PHOSPHATE
     Indication: TYPE 2 DIABETES MELLITUS
     Dosage: 50/1000 MG, BID
     Route: 048
     Dates: start: 20090130, end: 20090815

REACTIONS (51)
  - Lung consolidation [Unknown]
  - Hypothyroidism [Unknown]
  - Pneumonia [Unknown]
  - Tuberculin test positive [Unknown]
  - Pancreaticoduodenectomy [Unknown]
  - Respiratory failure [Recovered/Resolved]
  - Hepatic cancer recurrent [Unknown]
  - Metastases to peripheral vascular system [Unknown]
  - Metastases to nervous system [Unknown]
  - Lower limb fracture [Unknown]
  - Cholecystitis chronic [Not Recovered/Not Resolved]
  - Gastritis [Unknown]
  - Radiotherapy [Unknown]
  - Cholelithiasis [Unknown]
  - Radiotherapy [Unknown]
  - Hypertension [Unknown]
  - Cataract operation [Unknown]
  - Glaucoma [Unknown]
  - Cholecystitis infective [Unknown]
  - Drain placement [Unknown]
  - Pancreatitis acute [Unknown]
  - Bile duct stone [Unknown]
  - Tenderness [Unknown]
  - Dyspnoea [Unknown]
  - Gastrooesophageal reflux disease [Unknown]
  - Dysphagia [Unknown]
  - Neck mass [Unknown]
  - Gout [Unknown]
  - Cholangitis [Unknown]
  - Gallbladder disorder [Unknown]
  - Prostatic disorder [Unknown]
  - Pancreatic carcinoma metastatic [Fatal]
  - Cholecystectomy [Unknown]
  - Biliary drainage [Unknown]
  - Deep vein thrombosis postoperative [Unknown]
  - Inappropriate schedule of drug administration [Unknown]
  - Gastric disorder [Unknown]
  - Malnutrition [Unknown]
  - Postoperative ileus [Unknown]
  - Exposure to communicable disease [Unknown]
  - High density lipoprotein decreased [Unknown]
  - Blood triglycerides increased [Unknown]
  - Bile duct stent insertion [Unknown]
  - Cholecystitis acute [Unknown]
  - Metastases to bone [Unknown]
  - Umbilical hernia [Unknown]
  - Pancreatic stent placement [Unknown]
  - Fracture treatment [Unknown]
  - Cough [Unknown]
  - Haemorrhoids [Unknown]
  - Benign prostatic hyperplasia [Unknown]

NARRATIVE: CASE EVENT DATE: 20090130
